FAERS Safety Report 7934180-8 (Version None)
Quarter: 2011Q4

REPORT INFORMATION
  Report Type: 
  Country: None (occurrence: None)
  Receive Date: 20111122
  Receipt Date: 20111109
  Transmission Date: 20120403
  Serious: Yes (Hospitalization)
  Sender: FDA-Public Use
  Company Number: IT-CELGENEUS-083-20785-11111387

PATIENT
  Sex: Female

DRUGS (7)
  1. DECADRON [Concomitant]
     Route: 041
     Dates: start: 20110908, end: 20111031
  2. VELCADE [Concomitant]
     Route: 041
     Dates: start: 20110908, end: 20111031
  3. ACYCLOVIR [Concomitant]
     Route: 048
     Dates: start: 20110908, end: 20111031
  4. ENOXAPARIN SODIUM [Concomitant]
     Route: 058
     Dates: start: 20110908, end: 20111031
  5. THALIDOMIDE [Suspect]
     Indication: MULTIPLE MYELOMA
     Dosage: 50 MILLIGRAM
     Route: 048
     Dates: start: 20110908, end: 20111014
  6. BACTRIM [Concomitant]
     Route: 048
     Dates: start: 20110908, end: 20111031
  7. LEVOLAC [Concomitant]
     Route: 048
     Dates: start: 20110908, end: 20111014

REACTIONS (1)
  - GASTROINTESTINAL HYPOMOTILITY [None]
